FAERS Safety Report 10205561 (Version 1)
Quarter: 2014Q2

REPORT INFORMATION
  Report Type: Report from Study
  Country: US (occurrence: US)
  Receive Date: 20140529
  Receipt Date: 20140529
  Transmission Date: 20141212
  Serious: Yes (Other)
  Sender: FDA-Public Use
  Company Number: US-EXELIXIS-CABO-14004316

PATIENT
  Age: 47 Year
  Sex: Male
  Weight: 103 kg

DRUGS (4)
  1. CABOZANTINIB [Suspect]
     Indication: THYROID CANCER
     Dosage: 140 MG, QD
     Route: 048
     Dates: start: 20140515
  2. OXYCODONE [Concomitant]
  3. LEVOTHYROXINE [Concomitant]
  4. HYDROCODONE [Concomitant]

REACTIONS (4)
  - Diarrhoea haemorrhagic [Unknown]
  - Haematemesis [Unknown]
  - Faeces pale [Unknown]
  - Diarrhoea [Unknown]
